FAERS Safety Report 12608123 (Version 5)
Quarter: 2017Q3

REPORT INFORMATION
  Report Type: Spontaneous
  Country: US (occurrence: US)
  Receive Date: 20160729
  Receipt Date: 20170728
  Transmission Date: 20171127
  Serious: No
  Sender: FDA-Public Use
  Company Number: US-AKRIMAX-TIR-2016-0835

PATIENT
  Sex: Female
  Weight: 113.5 kg

DRUGS (8)
  1. TIROSINT [Suspect]
     Active Substance: LEVOTHYROXINE SODIUM
     Indication: HYPOTHYROIDISM
     Dosage: ONCE DAILY
     Route: 048
     Dates: start: 201606, end: 20160711
  2. TIROSINT [Suspect]
     Active Substance: LEVOTHYROXINE SODIUM
     Dosage: ALTERNATING 75MCG ONE DAY, 50MCG THE NEXT DAY
     Route: 048
     Dates: start: 201603, end: 201606
  3. TIROSINT [Suspect]
     Active Substance: LEVOTHYROXINE SODIUM
     Indication: HYPOTHYROIDISM
     Dosage: ALTERNATING 75MCG ONE DAY, 50MCG THE NEXT DAY
     Route: 048
     Dates: start: 201603, end: 201606
  4. TIROSINT [Suspect]
     Active Substance: LEVOTHYROXINE SODIUM
     Dosage: ONCE DAILY FOR FIVE DAYS
     Route: 048
     Dates: start: 201606, end: 201606
  5. TIROSINT [Suspect]
     Active Substance: LEVOTHYROXINE SODIUM
     Indication: HYPOTHYROIDISM
     Route: 048
  6. TIROSINT [Suspect]
     Active Substance: LEVOTHYROXINE SODIUM
     Dosage: ^ALTERNATING 3 CAPSULES WITH 2 CAPSULES EVERY OTHER DAY FOR AN AVERAGE OF 125MCG PER DAY^
     Route: 048
  7. TIROSINT [Suspect]
     Active Substance: LEVOTHYROXINE SODIUM
     Indication: HYPOTHYROIDISM
     Dosage: ONCE DAILY
     Route: 048
     Dates: end: 201603
  8. TIROSINT [Suspect]
     Active Substance: LEVOTHYROXINE SODIUM
     Dosage: TWO CAPSULES DAILY
     Route: 048
     Dates: start: 20160711

REACTIONS (33)
  - Bradyphrenia [Unknown]
  - Skin atrophy [Not Recovered/Not Resolved]
  - Sensory disturbance [Unknown]
  - Abdominal pain upper [Unknown]
  - Abdominal distension [Recovered/Resolved]
  - Wrong technique in product usage process [Unknown]
  - Fatigue [Not Recovered/Not Resolved]
  - Skin discolouration [Unknown]
  - Blood thyroid stimulating hormone decreased [Unknown]
  - Drug level above therapeutic [Not Recovered/Not Resolved]
  - Rash [Unknown]
  - Diarrhoea [Not Recovered/Not Resolved]
  - Oedema peripheral [Recovering/Resolving]
  - Somnolence [Not Recovered/Not Resolved]
  - Pain [Unknown]
  - Abdominal discomfort [Not Recovered/Not Resolved]
  - Product physical issue [Unknown]
  - Skin hypertrophy [Unknown]
  - Hypersensitivity [Unknown]
  - Irritability [Not Recovered/Not Resolved]
  - Eye swelling [Unknown]
  - Eye colour change [Unknown]
  - Blister [Not Recovered/Not Resolved]
  - Insomnia [Recovering/Resolving]
  - Peripheral swelling [Unknown]
  - Hypoaesthesia [Unknown]
  - Mood altered [Not Recovered/Not Resolved]
  - Lethargy [Not Recovered/Not Resolved]
  - Eye irritation [Unknown]
  - Vein disorder [Unknown]
  - Aphonia [Unknown]
  - Body height increased [Unknown]
  - Weight increased [Unknown]

NARRATIVE: CASE EVENT DATE: 2016
